FAERS Safety Report 5611134-8 (Version None)
Quarter: 2008Q1

REPORT INFORMATION
  Report Type: 
  Country: None (occurrence: None)
  Receive Date: 20080129
  Receipt Date: 20080121
  Transmission Date: 20080703
  Serious: Yes (Hospitalization, Other)
  Sender: FDA-Public Use
  Company Number: 2007SP025012

PATIENT
  Age: 47 Year
  Sex: Female
  Weight: 73.9363 kg

DRUGS (5)
  1. PROVENTIL-HFA [Suspect]
     Indication: ASTHMA
     Dosage: 2 DF; PRN; PO
     Route: 048
     Dates: start: 20071024
  2. INTENT TO TREAT [Suspect]
     Indication: DRUG USE FOR UNKNOWN INDICATION
  3. ADVAIR DISKUS 100/50 [Suspect]
     Indication: ASTHMA
     Dosage: 1 DF; BID
     Dates: start: 20060601
  4. FLONASE [Concomitant]
  5. ALBUTEROL [Concomitant]

REACTIONS (3)
  - BRONCHITIS [None]
  - INFLUENZA [None]
  - NASOPHARYNGITIS [None]
